FAERS Safety Report 5912272-2 (Version None)
Quarter: 2008Q4

REPORT INFORMATION
  Report Type: 
  Country: None (occurrence: None)
  Receive Date: 20081008
  Receipt Date: 20081002
  Transmission Date: 20090506
  Serious: Yes (Other)
  Sender: FDA-Public Use
  Company Number: D0058753A

PATIENT
  Age: 60 Year
  Sex: Male
  Weight: 61 kg

DRUGS (5)
  1. REQUIP [Suspect]
     Indication: PARKINSONISM
     Route: 065
     Dates: start: 20080725
  2. SIMVASTATIN [Concomitant]
     Route: 065
  3. NEXIUM [Concomitant]
     Route: 065
  4. LORAZEPAM [Concomitant]
     Route: 065
  5. ASPIRIN [Concomitant]
     Route: 065

REACTIONS (2)
  - CONSTIPATION [None]
  - FAECALOMA [None]
